FAERS Safety Report 15108163 (Version 4)
Quarter: 2019Q1

REPORT INFORMATION
  Report Type: Report from Study
  Country: IT (occurrence: IT)
  Receive Date: 20180705
  Receipt Date: 20190220
  Transmission Date: 20190417
  Serious: Yes (Hospitalization)
  Sender: FDA-Public Use
  Company Number: IT-TEVA-2018-IT-918506

PATIENT
  Age: 79 Year
  Sex: Female

DRUGS (11)
  1. ALLOPURINOL. [Suspect]
     Active Substance: ALLOPURINOL
     Dosage: 1 DOSAGE FORMS DAILY;
     Route: 048
     Dates: start: 20180101, end: 20180322
  2. FUROSEMIDE. [Concomitant]
     Active Substance: FUROSEMIDE
     Route: 065
  3. CONGESCOR 1,25 MG, COMPRESSE FILM-RIVESTITE [Suspect]
     Active Substance: BISOPROLOL FUMARATE
     Dosage: 1 DOSAGE FORMS DAILY;
     Route: 048
     Dates: start: 20180101, end: 20180322
  4. RIVOTRIL [Suspect]
     Active Substance: CLONAZEPAM
     Route: 048
     Dates: start: 20180101, end: 20180322
  5. LANSOPRAZOLE. [Suspect]
     Active Substance: LANSOPRAZOLE
     Dosage: 1 DOSAGE FORMS DAILY;
     Route: 048
     Dates: start: 20180101, end: 20180322
  6. TAPAZOLE [Suspect]
     Active Substance: METHIMAZOLE
     Dosage: 5 MILLIGRAM DAILY;
     Route: 048
     Dates: start: 20180101, end: 20180322
  7. XANAX [Suspect]
     Active Substance: ALPRAZOLAM
     Dosage: .25 MILLIGRAM DAILY;
     Route: 048
     Dates: start: 20180101, end: 20180322
  8. TAPAZOLE [Suspect]
     Active Substance: METHIMAZOLE
     Dosage: 1 DOSAGE FORMS DAILY;
     Route: 048
     Dates: start: 20180101, end: 20180322
  9. XANAX [Suspect]
     Active Substance: ALPRAZOLAM
     Dosage: 1 DOSAGE FORMS DAILY;
     Route: 048
     Dates: start: 20180101, end: 20180322
  10. CALCITRIOL. [Concomitant]
     Active Substance: CALCITRIOL
     Route: 065
  11. TORVAST 10 MG COMPRESSE RIVESTITE CON FILM [Suspect]
     Active Substance: ATORVASTATIN CALCIUM
     Dosage: 1 DOSAGE FORMS DAILY;
     Route: 048
     Dates: start: 20180101, end: 20180322

REACTIONS (3)
  - Vomiting [Unknown]
  - Abdominal pain [Unknown]
  - Hepatitis [Unknown]

NARRATIVE: CASE EVENT DATE: 20180322
